FAERS Safety Report 13761528 (Version 2)
Quarter: 2017Q3

REPORT INFORMATION
  Report Type: Spontaneous
  Country: US (occurrence: US)
  Receive Date: 20170717
  Receipt Date: 20170718
  Transmission Date: 20171127
  Serious: Yes (Other)
  Sender: FDA-Public Use
  Company Number: US-009507513-1707USA003789

PATIENT
  Sex: Female

DRUGS (1)
  1. NEXPLANON [Suspect]
     Active Substance: ETONOGESTREL
     Dosage: 1 IMPLANT, UNK
     Route: 059
     Dates: start: 20160517

REACTIONS (4)
  - Weight decreased [Unknown]
  - Application site burn [Unknown]
  - Menometrorrhagia [Unknown]
  - Gastric bypass [Unknown]

NARRATIVE: CASE EVENT DATE: 201612
